FAERS Safety Report 10509463 (Version 3)
Quarter: 2014Q4

REPORT INFORMATION
  Report Type: Spontaneous
  Country: DE (occurrence: DE)
  Receive Date: 20141009
  Receipt Date: 20141120
  Transmission Date: 20150528
  Serious: Yes (Hospitalization)
  Sender: FDA-Public Use
  Company Number: PHHY2014DE129550

PATIENT
  Sex: Female

DRUGS (2)
  1. BUDES N [Concomitant]
     Active Substance: BUDESONIDE
     Indication: ASTHMA
     Route: 065
  2. FORADIL [Suspect]
     Active Substance: FORMOTEROL FUMARATE
     Indication: ASTHMA
     Dosage: 1 DF, BID (SINCE 8 TO 10 YEARS)
     Route: 065

REACTIONS (6)
  - Nasopharyngitis [Unknown]
  - Dysphonia [Unknown]
  - Joint injury [Recovered/Resolved]
  - Cough [Recovered/Resolved]
  - Productive cough [Unknown]
  - Accident at work [Recovered/Resolved]

NARRATIVE: CASE EVENT DATE: 2014
